FAERS Safety Report 14227185 (Version 1)
Quarter: 2017Q4

REPORT INFORMATION
  Report Type: Spontaneous
  Country: IE (occurrence: IE)
  Receive Date: 20171127
  Receipt Date: 20171127
  Transmission Date: 20180321
  Serious: Yes (Other)
  Sender: FDA-Public Use
  Company Number: PHHY2017IE173231

PATIENT
  Age: 55 Year

DRUGS (4)
  1. LETROZOLE. [Suspect]
     Active Substance: LETROZOLE
     Indication: INTRADUCTAL PROLIFERATIVE BREAST LESION
  2. SUNITINIB [Suspect]
     Active Substance: SUNITINIB
     Indication: INTRADUCTAL PROLIFERATIVE BREAST LESION
     Dosage: 37.5 MG, UNK
     Route: 065
  3. LETROZOLE. [Suspect]
     Active Substance: LETROZOLE
     Indication: RENAL CELL CARCINOMA
     Route: 065
  4. SUNITINIB [Suspect]
     Active Substance: SUNITINIB
     Indication: RENAL CELL CARCINOMA
     Dosage: 50 MG, UNK
     Route: 065

REACTIONS (3)
  - Thrombocytopenia [Unknown]
  - Oral pain [Recovering/Resolving]
  - Hypothyroidism [Unknown]
